FAERS Safety Report 19701160 (Version 3)
Quarter: 2022Q3

REPORT INFORMATION
  Report Type: Spontaneous
  Country: US (occurrence: US)
  Receive Date: 20210814
  Receipt Date: 20220705
  Transmission Date: 20221027
  Serious: Yes (Hospitalization)
  Sender: FDA-Public Use
  Company Number: US-NOVARTISPH-NVSC2021US180039

PATIENT
  Age: 0 Year
  Sex: Male

DRUGS (1)
  1. GILENYA [Suspect]
     Active Substance: FINGOLIMOD HYDROCHLORIDE
     Indication: Foetal exposure during pregnancy
     Dosage: PATERNAL EXPOSURE DURING PREGNANCY: 0.5 MG, QD
     Route: 050

REACTIONS (7)
  - COVID-19 [Recovered/Resolved]
  - Deep vein thrombosis [Recovered/Resolved]
  - Beta haemolytic streptococcal infection [Recovered/Resolved]
  - Gastrointestinal disorder [Unknown]
  - Limb asymmetry [Unknown]
  - Milk allergy [Unknown]
  - Foetal exposure during pregnancy [Unknown]

NARRATIVE: CASE EVENT DATE: 20200805
